FAERS Safety Report 9818544 (Version 1)
Quarter: 2014Q1

REPORT INFORMATION
  Report Type: Spontaneous
  Country: US (occurrence: None)
  Receive Date: 20140114
  Receipt Date: 20140114
  Transmission Date: 20141002
  Serious: Yes (Death)
  Sender: FDA-Public Use
  Company Number: None

PATIENT
  Age: 65 Year
  Sex: Female

DRUGS (1)
  1. POMALIDOMIDE [Suspect]
     Indication: PLASMA CELL MYELOMA
     Dates: start: 201302

REACTIONS (1)
  - Oncologic complication [None]
